FAERS Safety Report 25320957 (Version 1)
Quarter: 2025Q2

REPORT INFORMATION
  Report Type: Spontaneous
  Country: US (occurrence: US)
  Receive Date: 20250515
  Receipt Date: 20250515
  Transmission Date: 20250717
  Serious: No
  Sender: SANOFI AVENTIS
  Company Number: US-SA-2025SA136541

PATIENT
  Age: 69 Year
  Sex: Male

DRUGS (1)
  1. DUPIXENT [Suspect]
     Active Substance: DUPILUMAB
     Route: 058

REACTIONS (8)
  - Red blood cell abnormality [Unknown]
  - Gait disturbance [Unknown]
  - Oxygen saturation decreased [Unknown]
  - Asthma [Unknown]
  - Wheezing [Unknown]
  - Dyspnoea [Unknown]
  - Condition aggravated [Unknown]
  - Traumatic lung injury [Unknown]

NARRATIVE: CASE EVENT DATE: 20250101
